FAERS Safety Report 24531605 (Version 1)
Quarter: 2024Q4

REPORT INFORMATION
  Report Type: Spontaneous
  Country: GB (occurrence: GB)
  Receive Date: 20241022
  Receipt Date: 20241022
  Transmission Date: 20250114
  Serious: Yes (Hospitalization, Other)
  Sender: BRAEBURN PHARMACEUTICALS
  Company Number: GB-CAMURUS AB-GB-CAM-24-01333

PATIENT
  Age: 39 Year
  Sex: Male

DRUGS (1)
  1. BUPRENORPHINE [Suspect]
     Active Substance: BUPRENORPHINE
     Indication: Product used for unknown indication
     Dosage: 96 MILLIGRAM, MONTHLY
     Route: 065
     Dates: start: 202406

REACTIONS (4)
  - Suicide attempt [Unknown]
  - Respiratory arrest [Unknown]
  - Brain injury [Unknown]
  - Coma [Not Recovered/Not Resolved]

NARRATIVE: CASE EVENT DATE: 20240701
